FAERS Safety Report 25357357 (Version 1)
Quarter: 2025Q2

REPORT INFORMATION
  Report Type: Report from Study
  Country: EG (occurrence: EG)
  Receive Date: 20250526
  Receipt Date: 20250526
  Transmission Date: 20250717
  Serious: Yes (Hospitalization)
  Sender: ROCHE
  Company Number: EG-ROCHE-10000287462

PATIENT
  Sex: Male

DRUGS (1)
  1. OCREVUS [Suspect]
     Active Substance: OCRELIZUMAB
     Indication: Multiple sclerosis
     Route: 042
     Dates: start: 20250516

REACTIONS (4)
  - Hypersensitivity [Unknown]
  - Rash [Unknown]
  - Dyspnoea [Unknown]
  - Heart rate decreased [Unknown]

NARRATIVE: CASE EVENT DATE: 20250516
